FAERS Safety Report 4369008-9 (Version None)
Quarter: 2004Q2

REPORT INFORMATION
  Report Type: 
  Country: None (occurrence: None)
  Receive Date: 20040525
  Receipt Date: 20040511
  Transmission Date: 20050107
  Serious: Yes (Hospitalization)
  Sender: FDA-Public Use
  Company Number: GB-JNJFOC-20040501840

PATIENT
  Age: 67 Year
  Sex: Female

DRUGS (8)
  1. REMICADE [Suspect]
     Indication: RHEUMATOID ARTHRITIS
     Dosage: 200 MG, INTRAVENOUS
     Route: 042
     Dates: start: 20030513
  2. DEPO-MEDROL [Concomitant]
  3. BENDROFLUAZIDE (BENDROFLUMETHIAZIDE) [Concomitant]
  4. CO-PROXAMOL (APOREX) [Concomitant]
  5. PREDNISOLONED (PREDNISOLONE) [Concomitant]
  6. METHOTREXATE [Concomitant]
  7. FOLIC ACID [Concomitant]
  8. HRT (ANDROGENS AND FEMALE SEX HORMONES IN COMB) [Concomitant]

REACTIONS (1)
  - UPPER LIMB FRACTURE [None]
